FAERS Safety Report 11913001 (Version 1)
Quarter: 2016Q1

REPORT INFORMATION
  Report Type: Report from Study
  Country: DE (occurrence: DE)
  Receive Date: 20160113
  Receipt Date: 20160113
  Transmission Date: 20160526
  Serious: Yes (Other)
  Sender: FDA-Public Use
  Company Number: DE-ROCHE-1691597

PATIENT

DRUGS (11)
  1. PRIMIDONE. [Concomitant]
     Active Substance: PRIMIDONE
  2. PHENYTOIN. [Concomitant]
     Active Substance: PHENYTOIN
  3. CARBAMAZEPINE. [Concomitant]
     Active Substance: CARBAMAZEPINE
  4. CLONAZEPAM. [Suspect]
     Active Substance: CLONAZEPAM
     Indication: EPILEPSY
     Route: 065
  5. PHENOBARBITAL. [Concomitant]
     Active Substance: PHENOBARBITAL
  6. ETHOSUXIMIDE. [Concomitant]
     Active Substance: ETHOSUXIMIDE
  7. DIAZEPAM. [Concomitant]
     Active Substance: DIAZEPAM
     Route: 065
  8. NITRAZEPAM [Concomitant]
     Active Substance: NITRAZEPAM
  9. PHENETURIDE [Concomitant]
     Active Substance: PHENETURIDE
  10. METHSUXIMIDE [Concomitant]
     Active Substance: METHSUXIMIDE
  11. PARAMETHADIONE. [Concomitant]
     Active Substance: PARAMETHADIONE

REACTIONS (14)
  - Therapy responder [Unknown]
  - Restlessness [Unknown]
  - Ataxia [Unknown]
  - Ill-defined disorder [Unknown]
  - Mental impairment [Unknown]
  - Dysarthria [Unknown]
  - Sleep disorder [Unknown]
  - Abnormal behaviour [Unknown]
  - Fatigue [Unknown]
  - Treatment failure [Unknown]
  - Epilepsy [Unknown]
  - Disturbance in attention [Unknown]
  - Salivary hypersecretion [Unknown]
  - Increased bronchial secretion [Unknown]
